FAERS Safety Report 8998430 (Version 1)
Quarter: 2013Q1

REPORT INFORMATION
  Report Type: Spontaneous
  Country: CH (occurrence: CH)
  Receive Date: 20130103
  Receipt Date: 20130103
  Transmission Date: 20140127
  Serious: Yes (Other)
  Sender: FDA-Public Use
  Company Number: CH-UCBSA-074175

PATIENT
  Age: 68 Year
  Sex: Male

DRUGS (13)
  1. KEPPRA [Suspect]
     Dates: start: 20121117, end: 20121119
  2. AUGMENTIN [Suspect]
     Indication: PNEUMONITIS
     Dates: start: 20121117, end: 20121119
  3. AUGMENTIN [Suspect]
     Indication: PNEUMONITIS
     Dosage: 2 DOSES OF 2.2 G
     Route: 042
     Dates: start: 20121211, end: 20121212
  4. NOVALGIN [Suspect]
     Indication: PAIN
     Dates: start: 20121117, end: 2012
  5. NOVALGIN [Suspect]
     Indication: PAIN
     Route: 048
     Dates: start: 20121211, end: 20121212
  6. PARACETAMOL [Concomitant]
     Dates: start: 20121116
  7. DISOPRIVAN [Concomitant]
     Dates: start: 20121116
  8. ATROVENT [Concomitant]
     Dates: start: 20121116
  9. REDOXON [Concomitant]
     Dates: start: 20121116
  10. ZINC/SELENIUM [Concomitant]
     Dates: start: 20121116
  11. TRIAMCINOLONE [Concomitant]
     Indication: RASH MACULO-PAPULAR
     Dosage: 0.1%
     Dates: start: 20121121
  12. TRICLOSAN [Concomitant]
     Indication: RASH MACULO-PAPULAR
     Dosage: 0.1%
     Dates: start: 20121121
  13. SOLU MEDROL [Concomitant]
     Indication: RASH MACULO-PAPULAR
     Dosage: 250MG 3D, THEN 125 MG 3D
     Route: 042
     Dates: start: 20121122

REACTIONS (3)
  - Type I hypersensitivity [Unknown]
  - Pemphigus [Recovered/Resolved]
  - Pruritus [Unknown]
